FAERS Safety Report 16298318 (Version 2)
Quarter: 2019Q3

REPORT INFORMATION
  Report Type: Spontaneous
  Country: BR (occurrence: BR)
  Receive Date: 20190510
  Receipt Date: 20190814
  Transmission Date: 20191004
  Serious: Yes (Other)
  Sender: FDA-Public Use
  Company Number: BR-GLAXOSMITHKLINE-BR2019GSK080428

PATIENT
  Sex: Male

DRUGS (7)
  1. COMBODART [Suspect]
     Active Substance: DUTASTERIDE\TAMSULOSIN
     Dosage: 1 DF, QD TABLET
     Dates: start: 20181210
  2. COMBODART [Suspect]
     Active Substance: DUTASTERIDE\TAMSULOSIN
     Dosage: 1 DF, QD TABLET
     Dates: start: 20181210
  3. ATENOLOL. [Concomitant]
     Active Substance: ATENOLOL
     Indication: PRODUCT USED FOR UNKNOWN INDICATION
     Dosage: 50 MG, UNK
  4. COMBODART [Suspect]
     Active Substance: DUTASTERIDE\TAMSULOSIN
     Indication: BENIGN PROSTATIC HYPERPLASIA
     Dosage: 1 DF, QD TABLET
     Dates: start: 20181210
  5. AAS [Concomitant]
     Active Substance: ASPIRIN
     Indication: PRODUCT USED FOR UNKNOWN INDICATION
     Dosage: 100 MG, UNK
  6. COMBODART [Suspect]
     Active Substance: DUTASTERIDE\TAMSULOSIN
     Dosage: 1 DF, QD TABLET
     Dates: start: 20181210
  7. ROSUVASTATINE [Concomitant]
     Active Substance: ROSUVASTATIN
     Indication: PRODUCT USED FOR UNKNOWN INDICATION
     Dosage: 10 MG, UNK

REACTIONS (5)
  - Spinal disorder [Unknown]
  - Pain in extremity [Unknown]
  - Dizziness [Unknown]
  - Limb injury [Recovered/Resolved]
  - Thrombosis [Recovered/Resolved]
